FAERS Safety Report 13981327 (Version 1)
Quarter: 2017Q3

REPORT INFORMATION
  Report Type: Spontaneous
  Country: US (occurrence: US)
  Receive Date: 20170915
  Receipt Date: 20170915
  Transmission Date: 20171128
  Serious: Yes (Hospitalization)
  Sender: FDA-Public Use
  Company Number: None

PATIENT
  Age: 81 Year
  Sex: Male
  Weight: 90.45 kg

DRUGS (2)
  1. ABIXABAN [Concomitant]
  2. ELIQUIS [Suspect]
     Active Substance: APIXABAN
     Indication: ATRIAL FIBRILLATION
     Route: 048
     Dates: start: 20160301, end: 20160701

REACTIONS (2)
  - Haematuria [None]
  - Urinary bladder haemorrhage [None]

NARRATIVE: CASE EVENT DATE: 20160809
